FAERS Safety Report 6928009-4 (Version None)
Quarter: 2010Q3

REPORT INFORMATION
  Report Type: 
  Country: None (occurrence: None)
  Receive Date: 20100817
  Receipt Date: 20100811
  Transmission Date: 20110219
  Serious: Yes (Other)
  Sender: FDA-Public Use
  Company Number: DE-BRISTOL-MYERS SQUIBB COMPANY-15236516

PATIENT
  Sex: Female

DRUGS (2)
  1. SPRYCEL [Suspect]
     Indication: CHRONIC MYELOID LEUKAEMIA
  2. AMBER [Interacting]
     Dosage: AMBER OIL

REACTIONS (5)
  - ASTHENIA [None]
  - DECREASED APPETITE [None]
  - DRUG INTERACTION [None]
  - LOSS OF CONSCIOUSNESS [None]
  - NAUSEA [None]
